FAERS Safety Report 6228620-2 (Version None)
Quarter: 2009Q2

REPORT INFORMATION
  Report Type: 
  Country: None (occurrence: None)
  Receive Date: 20090612
  Receipt Date: 20090608
  Transmission Date: 20091009
  Serious: Yes (Other)
  Sender: FDA-Public Use
  Company Number: US-MERCK-0904USA02763

PATIENT
  Age: 31 Year
  Sex: Male
  Weight: 116 kg

DRUGS (8)
  1. SINGULAIR [Suspect]
     Indication: ASTHMA
     Route: 048
     Dates: end: 20090225
  2. SINGULAIR [Suspect]
     Route: 048
     Dates: start: 20081015
  3. SINGULAIR [Suspect]
     Indication: HYPERSENSITIVITY
     Route: 048
     Dates: end: 20090225
  4. SINGULAIR [Suspect]
     Route: 048
     Dates: start: 20081015
  5. SYMBICORT [Concomitant]
     Indication: ASTHMA
     Dates: start: 20080917
  6. XOPENEX [Concomitant]
     Indication: ASTHMA
     Dates: start: 20081015
  7. CHLORPHENIRAMINE MALEATE AND PSEUDOEPHEDRINE HCL [Concomitant]
     Indication: NASAL CONGESTION
     Route: 048
     Dates: start: 20081210, end: 20090303
  8. ALLEGRA [Concomitant]
     Indication: HYPERSENSITIVITY
     Route: 048
     Dates: start: 20090413

REACTIONS (2)
  - DEPRESSION [None]
  - SUICIDAL IDEATION [None]
